FAERS Safety Report 6527288-5 (Version None)
Quarter: 2010Q1

REPORT INFORMATION
  Report Type: 
  Country: None (occurrence: None)
  Receive Date: 20100104
  Receipt Date: 20100104
  Transmission Date: 20100710
  Serious: No
  Sender: FDA-Public Use
  Company Number: None

PATIENT
  Age: 65 Year
  Sex: Female
  Weight: 113.6 kg

DRUGS (2)
  1. TOPIRAMATE [Suspect]
     Indication: DEPRESSION
     Dosage: 150 MG DAILY HS ORAL
     Route: 048
     Dates: start: 20090101
  2. VENLAFAXINE [Suspect]
     Indication: DEPRESSION
     Dosage: 112.5 DAILY HS ORAL
     Route: 048
     Dates: start: 20080101

REACTIONS (10)
  - DIZZINESS POSTURAL [None]
  - DRY MOUTH [None]
  - DYSGEUSIA [None]
  - DYSPEPSIA [None]
  - ERYTHEMA [None]
  - FLATULENCE [None]
  - GASTRIC DISORDER [None]
  - GASTROINTESTINAL DISORDER [None]
  - SOMNOLENCE [None]
  - YAWNING [None]
